FAERS Safety Report 9310978 (Version 1)
Quarter: 2013Q2

REPORT INFORMATION
  Report Type: Spontaneous
  Country: US (occurrence: None)
  Receive Date: 20130523
  Receipt Date: 20130523
  Transmission Date: 20140414
  Serious: Yes (Other)
  Sender: FDA-Public Use
  Company Number: None

PATIENT
  Age: 66 Year
  Sex: Female

DRUGS (2)
  1. JETREA [Suspect]
     Indication: MACULAR HOLE
     Dates: start: 20130507, end: 20130507
  2. JETREA [Suspect]
     Indication: VITREOUS ADHESIONS
     Dates: start: 20130507, end: 20130507

REACTIONS (1)
  - Visual acuity reduced [None]
